FAERS Safety Report 8071970-8 (Version None)
Quarter: 2012Q1

REPORT INFORMATION
  Report Type: 
  Country: None (occurrence: None)
  Receive Date: 20120124
  Receipt Date: 20120124
  Transmission Date: 20120608
  Serious: Yes (Hospitalization)
  Sender: FDA-Public Use
  Company Number: None

PATIENT
  Sex: Male
  Weight: 79.1 kg

DRUGS (3)
  1. SOLIRIS [Suspect]
     Indication: PROPHYLAXIS AGAINST TRANSPLANT REJECTION
     Dosage: 1200 MG 4 IV : 900 MG 5 IV : 600 MG 17 IV
     Route: 042
     Dates: start: 20111103
  2. SOLIRIS [Suspect]
     Indication: PROPHYLAXIS AGAINST TRANSPLANT REJECTION
     Dosage: 1200 MG 4 IV : 900 MG 5 IV : 600 MG 17 IV
     Route: 042
     Dates: start: 20111104
  3. SOLIRIS [Suspect]
     Indication: PROPHYLAXIS AGAINST TRANSPLANT REJECTION
     Dosage: 1200 MG 4 IV : 900 MG 5 IV : 600 MG 17 IV
     Route: 042
     Dates: start: 20111110, end: 20111118

REACTIONS (13)
  - DYSPNOEA [None]
  - PNEUMONIA [None]
  - PLEURAL EFFUSION [None]
  - HAEMODIALYSIS [None]
  - FATIGUE [None]
  - ASTHENIA [None]
  - OXYGEN SATURATION DECREASED [None]
  - OEDEMA PERIPHERAL [None]
  - CHEST DISCOMFORT [None]
  - NEPHROTIC SYNDROME [None]
  - DISEASE RECURRENCE [None]
  - COMPLICATIONS OF TRANSPLANTED KIDNEY [None]
  - FOCAL SEGMENTAL GLOMERULOSCLEROSIS [None]
